FAERS Safety Report 5445357-8 (Version None)
Quarter: 2007Q3

REPORT INFORMATION
  Report Type: 
  Country: None (occurrence: None)
  Receive Date: 20070731
  Receipt Date: 20070608
  Transmission Date: 20080115
  Serious: No
  Sender: FDA-Public Use
  Company Number: US200706001962

PATIENT
  Age: 69 Year
  Sex: Female
  Weight: 188 kg

DRUGS (8)
  1. BYETTA [Suspect]
     Indication: TYPE 2 DIABETES MELLITUS
     Dosage: 2/D, SUBCUTANEOUS
     Route: 058
     Dates: start: 20061001
  2. OMEPRAZOLE [Concomitant]
  3. TOPROL-XL [Concomitant]
  4. LANTUS [Concomitant]
  5. ACTOS [Concomitant]
  6. SYNTHROID [Concomitant]
  7. CRESTOR [Concomitant]
  8. AMBIEN [Concomitant]

REACTIONS (4)
  - ACCIDENTAL OVERDOSE [None]
  - DYSPNOEA [None]
  - HYPOGLYCAEMIA [None]
  - MEDICATION ERROR [None]
